FAERS Safety Report 10187218 (Version 2)
Quarter: 2014Q2

REPORT INFORMATION
  Report Type: Spontaneous
  Country: JP (occurrence: JP)
  Receive Date: 20140522
  Receipt Date: 20140522
  Transmission Date: 20141212
  Serious: Yes (Disabling)
  Sender: FDA-Public Use
  Company Number: JP-BAYER-2014-039706

PATIENT
  Age: 84 Year
  Sex: Male

DRUGS (14)
  1. EYLEA [Suspect]
     Indication: AGE-RELATED MACULAR DEGENERATION
     Dosage: 2 MG, ONCE
     Route: 031
     Dates: start: 20130911, end: 20130911
  2. EYLEA [Suspect]
     Indication: AGE-RELATED MACULAR DEGENERATION
     Dosage: 2 MG, ONCE
     Route: 031
     Dates: start: 201310, end: 201310
  3. EYLEA [Suspect]
     Indication: AGE-RELATED MACULAR DEGENERATION
     Dosage: 2 MG, ONCE
     Route: 031
     Dates: start: 20131105, end: 20131105
  4. EYLEA [Suspect]
     Indication: AGE-RELATED MACULAR DEGENERATION
     Dosage: 2 MG, ONCE
     Route: 031
     Dates: start: 20140219, end: 20140219
  5. EYLEA [Suspect]
     Indication: AGE-RELATED MACULAR DEGENERATION
     Dosage: 2 MG, ONCE
     Route: 031
     Dates: start: 20140318, end: 20140318
  6. BAYASPIRIN [Suspect]
     Dosage: 100 MG, BID
     Route: 048
  7. TAGAMET [Concomitant]
     Dosage: 200 MG, BID
     Route: 048
  8. CONIEL [Concomitant]
     Dosage: 4 MG, QD
     Route: 048
  9. ITOROL [Concomitant]
     Dosage: 20 MG, BID
     Route: 048
  10. GLIMICRON [Concomitant]
     Dosage: 40 MG, QD
     Route: 048
  11. SIGMART [Concomitant]
     Dosage: 5 MG, TID
     Route: 048
  12. KAMAG G [Concomitant]
     Dosage: UNK
     Route: 048
  13. LIPITOR [Concomitant]
     Dosage: 10 MG, QD
     Route: 048
  14. NITRODERM TTS [Concomitant]
     Dosage: 1 DF, QD
     Route: 062

REACTIONS (2)
  - Retinal haemorrhage [Not Recovered/Not Resolved]
  - Vitreous haemorrhage [Not Recovered/Not Resolved]
